FAERS Safety Report 8206120-8 (Version None)
Quarter: 2012Q1

REPORT INFORMATION
  Report Type: 
  Country: None (occurrence: None)
  Receive Date: 20120313
  Receipt Date: 20120309
  Transmission Date: 20120608
  Serious: Yes (Death)
  Sender: FDA-Public Use
  Company Number: FR-ASTRAZENECA-2012SE16671

PATIENT
  Age: 939 Month
  Sex: Male

DRUGS (9)
  1. ASPIRIN [Concomitant]
  2. NOVOMIX [Concomitant]
  3. RAMIPRIL [Concomitant]
  4. BISOPROLOL FUMARATE [Concomitant]
  5. LASIX [Concomitant]
  6. AMARYL [Concomitant]
  7. CRESTOR [Suspect]
     Route: 048
  8. OMEPRAZOLE [Concomitant]
  9. OMEXEL [Concomitant]

REACTIONS (1)
  - INTERSTITIAL LUNG DISEASE [None]
